FAERS Safety Report 10200432 (Version 1)
Quarter: 2014Q2

REPORT INFORMATION
  Report Type: Report from Study
  Country: US (occurrence: US)
  Receive Date: 20140528
  Receipt Date: 20140528
  Transmission Date: 20141212
  Serious: Yes (Hospitalization)
  Sender: FDA-Public Use
  Company Number: PHHY2014US061942

PATIENT
  Age: 58 Year
  Sex: Male
  Weight: 63.2 kg

DRUGS (52)
  1. IRINOTECAN [Suspect]
     Indication: COLORECTAL CANCER METASTATIC
     Dosage: 325 MG, 1 IN 2 WEEK
     Route: 042
     Dates: start: 20130124
  2. IRINOTECAN [Suspect]
     Dosage: 262 MG, 1 IN 2 WEEK
     Route: 042
     Dates: start: 20130221
  3. IRINOTECAN [Suspect]
     Dosage: 210 MG, 1 IN 2 WEEK
     Route: 042
     Dates: start: 20130404
  4. LEUCOVORIN CALCIUM [Suspect]
     Indication: COLORECTAL CANCER METASTATIC
     Dosage: 724 MG, 1 IN 2 WEEK
     Route: 042
     Dates: start: 20130124
  5. LEUCOVORIN CALCIUM [Suspect]
     Dosage: 700 MG, 1 IN 2 WEEK
     Route: 042
     Dates: start: 20130221
  6. 5-FLUOROURACIL [Suspect]
     Indication: COLORECTAL CANCER METASTATIC
     Dosage: 4344 MG, UNK
     Route: 042
     Dates: start: 20130124
  7. 5-FLUOROURACIL [Suspect]
     Dosage: 3500 MG, UNK
     Route: 042
     Dates: start: 20130221
  8. 5-FLUOROURACIL [Suspect]
     Dosage: 2800 MG, UNK
     Route: 042
     Dates: start: 20130404
  9. LOVENOX [Concomitant]
     Indication: DEEP VEIN THROMBOSIS
     Dosage: 160 MG (80 MG X 2)
     Route: 058
     Dates: start: 201205
  10. METFORMIN [Concomitant]
     Indication: DIABETES MELLITUS
     Dosage: 1000 MG (500 MG X 2)
     Route: 048
     Dates: start: 201205
  11. GLIPIZIDE [Concomitant]
     Indication: DIABETES MELLITUS
     Dosage: 5 MG, UNK
     Route: 048
     Dates: start: 201205
  12. NORCO [Concomitant]
     Indication: ARTHRALGIA
     Dosage: 1 DF, WHEN REQUIRED
     Route: 048
     Dates: start: 201211
  13. NORCO [Concomitant]
     Dosage: 10 MG, UNK
     Route: 048
     Dates: start: 201211
  14. COLACE [Concomitant]
     Indication: CONSTIPATION
     Route: 048
     Dates: start: 201209
  15. ATIVAN [Concomitant]
     Indication: ANXIETY
     Dosage: 2 MG, UNK
     Route: 048
     Dates: start: 20130110
  16. TYLENOL [Concomitant]
     Indication: PREMEDICATION
     Dosage: 500 MG, UNK
     Route: 048
     Dates: start: 20130207
  17. CLEOCIN T [Concomitant]
     Indication: DERMATITIS ACNEIFORM
     Dosage: 1 %, UNK
     Route: 061
     Dates: start: 20130131
  18. DECADRON [Concomitant]
     Indication: PREMEDICATION
     Dosage: 4 MG, UNK
     Route: 048
     Dates: start: 20130206
  19. DECADRON [Concomitant]
     Dosage: 10 MG, UNK
     Route: 042
     Dates: start: 20130207
  20. K-DUR [Concomitant]
     Indication: HYPOKALAEMIA
     Dosage: 40 OT, UNK
     Route: 048
     Dates: start: 20130207, end: 20130207
  21. K-DUR [Concomitant]
     Dosage: 40 OT, UNK
     Route: 048
     Dates: start: 20130215, end: 20130215
  22. K-DUR [Concomitant]
     Dosage: 40 OT, UNK
     Route: 048
     Dates: start: 20130404, end: 20130404
  23. K-DUR [Concomitant]
     Dosage: 40 OT, UNK
     Route: 048
     Dates: start: 20130411, end: 20130411
  24. K-DUR [Concomitant]
     Dosage: 20 OT, UNK
     Route: 048
     Dates: start: 20130309, end: 20130309
  25. POTASSIUM CHLORIDE [Concomitant]
     Indication: HYPOKALAEMIA
     Dosage: 60 OT, UNK
     Route: 042
     Dates: start: 20130207, end: 20130207
  26. POTASSIUM CHLORIDE [Concomitant]
     Indication: HYPOPHOSPHATAEMIA
     Dosage: 40 OT, UNK
     Route: 042
     Dates: start: 20130215, end: 20130215
  27. POTASSIUM CHLORIDE [Concomitant]
     Indication: DEHYDRATION
     Dosage: 40 OT, UNK
     Route: 042
     Dates: start: 20130221, end: 20130221
  28. POTASSIUM CHLORIDE [Concomitant]
     Dosage: 20 OT, UNK
     Route: 042
     Dates: start: 20130228, end: 20130301
  29. POTASSIUM CHLORIDE [Concomitant]
     Dosage: 80 OT, UNK
     Route: 042
     Dates: start: 20130411, end: 20130411
  30. POTASSIUM CHLORIDE [Concomitant]
     Dosage: 40 OT, UNK
     Route: 042
     Dates: start: 20130404, end: 20130404
  31. POTASSIUM CHLORIDE [Concomitant]
     Dosage: 20 OT, UNK
     Route: 042
     Dates: start: 20130309, end: 20130309
  32. POTASSIUM CHLORIDE [Concomitant]
     Dosage: 80 OT, UNK
     Route: 042
     Dates: start: 20130425, end: 20130425
  33. SODIUM PHOSPHATE DIBASIC [Concomitant]
     Indication: HYPOPHOSPHATAEMIA
     Dosage: 40 OT, UNK
     Route: 042
     Dates: start: 20130207, end: 20130207
  34. SODIUM PHOSPHATE DIBASIC [Concomitant]
     Indication: DEHYDRATION
     Dosage: 40 OT, UNK
     Route: 042
     Dates: start: 20130215, end: 20130215
  35. SODIUM PHOSPHATE DIBASIC [Concomitant]
     Dosage: 60 OT, UNK
     Route: 042
     Dates: start: 20130221, end: 20130221
  36. SODIUM PHOSPHATE DIBASIC [Concomitant]
     Dosage: 2 OT, UNK
     Route: 048
     Dates: start: 20130309, end: 20130309
  37. VALTREX [Concomitant]
     Indication: MUCOSAL INFLAMMATION
     Dosage: 5 %, UNK
     Route: 061
     Dates: start: 20130214
  38. MAGNESIUM SULFATE [Concomitant]
     Indication: HYPOMAGNESAEMIA
     Dosage: 2 G, UNK
     Route: 042
     Dates: start: 20130215, end: 20130215
  39. MAGNESIUM SULFATE [Concomitant]
     Dosage: 4 G, UNK
     Route: 042
     Dates: start: 20130301, end: 20130303
  40. MAGNESIUM SULFATE [Concomitant]
     Dosage: 6 G, UNK
     Route: 042
     Dates: start: 20130305, end: 20130305
  41. MAGNESIUM SULFATE [Concomitant]
     Dosage: 2 G, UNK
     Route: 042
     Dates: start: 20130425, end: 20130425
  42. KYTRIL [Concomitant]
     Dosage: 1 MG, UNK
     Route: 042
     Dates: start: 20130404
  43. LEVAQUIN [Concomitant]
     Indication: LOCALISED INFECTION
     Dosage: 500 MG, UNK
     Route: 048
     Dates: start: 20130315
  44. ATROPINE [Concomitant]
     Indication: PREMEDICATION
     Dosage: 0.4 MG, UNK
     Route: 058
     Dates: start: 20130207, end: 20130207
  45. ATROPINE [Concomitant]
     Dosage: 0.4 MG, UNK
     Route: 058
     Dates: start: 20130221, end: 20130221
  46. ATROPINE [Concomitant]
     Dosage: 0.4 MG, UNK
     Route: 058
     Dates: start: 20130124, end: 20130124
  47. BENADRYL [Concomitant]
     Indication: PREMEDICATION
     Dosage: 50 MG, UNK
     Route: 042
     Dates: start: 20130207, end: 20130207
  48. BENADRYL [Concomitant]
     Dosage: 50 MG, UNK
     Route: 042
     Dates: start: 20130221, end: 20130221
  49. BENADRYL [Concomitant]
     Dosage: 50 MG, UNK
     Route: 042
     Dates: start: 20130124, end: 20130124
  50. ZOFRAN [Concomitant]
     Indication: PREMEDICATION
     Dosage: 24 MG, UNK
     Route: 048
     Dates: start: 20130207, end: 20130207
  51. ZOFRAN [Concomitant]
     Dosage: 24 MG, UNK
     Route: 048
     Dates: start: 20130221, end: 20130221
  52. ZOFRAN [Concomitant]
     Dosage: 24 MG, UNK
     Route: 048
     Dates: start: 20130124, end: 20130124

REACTIONS (7)
  - Sinus tachycardia [Unknown]
  - Heart rate increased [Recovered/Resolved]
  - Palpitations [Recovered/Resolved]
  - Hypokalaemia [Recovered/Resolved]
  - Fatigue [Recovered/Resolved]
  - Diarrhoea [Recovered/Resolved]
  - Dehydration [Recovered/Resolved]
